FAERS Safety Report 24277045 (Version 1)
Quarter: 2024Q3

REPORT INFORMATION
  Report Type: Spontaneous
  Country: US (occurrence: US)
  Receive Date: 20240903
  Receipt Date: 20240903
  Transmission Date: 20241017
  Serious: Yes (Other)
  Sender: MYLAN
  Company Number: US-MYLANLABS-2024M1079930

PATIENT
  Age: 69 Year
  Sex: Female

DRUGS (7)
  1. DOXORUBICIN [Suspect]
     Active Substance: DOXORUBICIN
     Indication: Ovarian clear cell carcinoma
     Dosage: UNK, CYCLE {RECEIVED 3 CYCLES BEFORE LACK OF EFFICACY WAS NOTED}
     Route: 065
  2. PACLITAXEL [Suspect]
     Active Substance: PACLITAXEL
     Indication: Ovarian clear cell carcinoma
     Dosage: UNK, CYCLE {RECEIVED 6 CYCLES BEFORE LACK OF EFFICACY WAS NOTED}
     Route: 065
     Dates: start: 2017
  3. BEVACIZUMAB [Suspect]
     Active Substance: BEVACIZUMAB
     Indication: Ovarian clear cell carcinoma
     Dosage: RECEIVED FOR 5 MONTHS BEFORE LACK OF EFFICACY WAS NOTED.
     Route: 065
  4. BEVACIZUMAB [Suspect]
     Active Substance: BEVACIZUMAB
     Dosage: UNK, CYCLE {ALONG WITH PACLITAXEL; RECEIVED 6 CYCLES BEFORE LACK OF EFFICACY WAS NOTED}
     Route: 065
     Dates: start: 2017
  5. FOSBRETABULIN [Suspect]
     Active Substance: FOSBRETABULIN
     Indication: Ovarian clear cell carcinoma
     Dosage: UNK
     Route: 065
     Dates: start: 2017
  6. NIVOLUMAB [Concomitant]
     Active Substance: NIVOLUMAB
     Indication: Ovarian clear cell carcinoma
     Dosage: UNK, CYCLE {RECEIVED TOTAL 17 CYCLES}
     Route: 065
  7. IPILIMUMAB [Concomitant]
     Active Substance: IPILIMUMAB
     Indication: Ovarian clear cell carcinoma
     Dosage: UNK, CYCLE {RECEIVED TOTAL 3 CYCLES}
     Route: 065

REACTIONS (2)
  - Drug ineffective [Unknown]
  - Disease progression [Unknown]
